FAERS Safety Report 18554161 (Version 6)
Quarter: 2021Q3

REPORT INFORMATION
  Report Type: Report from Study
  Country: US (occurrence: US)
  Receive Date: 20201127
  Receipt Date: 20210910
  Transmission Date: 20211014
  Serious: No
  Sender: FDA-Public Use
  Company Number: NVSC2020US308059

PATIENT
  Sex: Female

DRUGS (1)
  1. KESIMPTA [Suspect]
     Active Substance: OFATUMUMAB
     Indication: MULTIPLE SCLEROSIS
     Dosage: UNK
     Route: 058

REACTIONS (9)
  - Balance disorder [Unknown]
  - Fatigue [Unknown]
  - Scoliosis [Unknown]
  - Illness [Unknown]
  - Fibromyalgia [Unknown]
  - Feeling abnormal [Unknown]
  - Aphasia [Unknown]
  - Stress [Unknown]
  - Dizziness [Unknown]
